FAERS Safety Report 13852569 (Version 1)
Quarter: 2017Q3

REPORT INFORMATION
  Report Type: Spontaneous
  Country: US (occurrence: US)
  Receive Date: 20170809
  Receipt Date: 20170809
  Transmission Date: 20171127
  Serious: No
  Sender: FDA-Public Use
  Company Number: US-PFIZER INC-2017342581

PATIENT
  Age: 39 Year
  Sex: Female

DRUGS (4)
  1. SYNTHROID [Concomitant]
     Active Substance: LEVOTHYROXINE SODIUM
     Dosage: 88 UG, SATURDAYS AND SUNDAYS
  2. DYAZIDE [Concomitant]
     Active Substance: HYDROCHLOROTHIAZIDE\TRIAMTERENE
     Dosage: UNK, AS NEEDED (HYDROCHLOROTHIAZIDE-25, TRIAMTERENE-37.5)(USUALLY ABOUT ONCE A WEEK)
  3. SYNTHROID [Concomitant]
     Active Substance: LEVOTHYROXINE SODIUM
     Dosage: 100 MCG MONDAY THROUGH FRIDAY
  4. GENOTROPIN MQ [Suspect]
     Active Substance: SOMATROPIN
     Indication: GROWTH HORMONE DEFICIENCY
     Dosage: 0.8 MG, DAILY
     Dates: start: 2016

REACTIONS (1)
  - Ear infection [Unknown]
